FAERS Safety Report 23683419 (Version 1)
Quarter: 2024Q1

REPORT INFORMATION
  Report Type: Spontaneous
  Country: GB (occurrence: GB)
  Receive Date: 20240328
  Receipt Date: 20240328
  Transmission Date: 20240409
  Serious: Yes (Death, Hospitalization)
  Sender: FDA-Public Use
  Company Number: GB-MYLANLABS-2024M1026225

PATIENT
  Sex: Male

DRUGS (3)
  1. CLOZARIL [Suspect]
     Active Substance: CLOZAPINE
     Indication: Schizophrenia
     Dosage: 775 MILLIGRAM, QD DAILY (175 MG IN THE MORNING AND 600 MG IN THE EVENING)
     Route: 048
     Dates: start: 19970612
  2. CLOZARIL [Suspect]
     Active Substance: CLOZAPINE
     Dosage: 575 MILLIGRAM, QD DAILY (175 MG IN THE MORNING AND 400 MG IN THE EVENING)
     Route: 048
  3. CLOZARIL [Suspect]
     Active Substance: CLOZAPINE
     Dosage: 525 MILLIGRAM, QD DAILY (175 MG IN THE MORNING AND 350 MG IN THE EVENING)
     Route: 048

REACTIONS (4)
  - Death [Fatal]
  - Fall [Unknown]
  - Fracture [Unknown]
  - Seizure [Unknown]

NARRATIVE: CASE EVENT DATE: 20240201
